FAERS Safety Report 24466536 (Version 1)
Quarter: 2024Q4

REPORT INFORMATION
  Report Type: Spontaneous
  Country: FR (occurrence: FR)
  Receive Date: 20241018
  Receipt Date: 20241018
  Transmission Date: 20250115
  Serious: Yes (Hospitalization, Congenital Anomaly)
  Sender: ABBVIE
  Company Number: FR-ABBVIE-5966761

PATIENT
  Age: 11 Year
  Sex: Male

DRUGS (1)
  1. ADALIMUMAB [Suspect]
     Active Substance: ADALIMUMAB
     Indication: Crohn^s disease
     Route: 058

REACTIONS (2)
  - Chronic granulomatous disease [Not Recovered/Not Resolved]
  - Drug ineffective [Unknown]
